FAERS Safety Report 6253797-2 (Version None)
Quarter: 2009Q3

REPORT INFORMATION
  Report Type: 
  Country: None (occurrence: None)
  Receive Date: 20090702
  Receipt Date: 20071109
  Transmission Date: 20100115
  Serious: Yes (Other)
  Sender: FDA-Public Use
  Company Number: US-ASTRAZENECA-2006UW12028

PATIENT
  Age: 18291 Day
  Sex: Male

DRUGS (29)
  1. SEROQUEL [Suspect]
     Indication: SCHIZOPHRENIA
     Route: 048
     Dates: start: 19980101
  2. SEROQUEL [Suspect]
     Indication: HALLUCINATION
     Route: 048
     Dates: start: 19980101
  3. SEROQUEL [Suspect]
     Dosage: 25 MG - 600 MG
     Route: 048
     Dates: start: 20000721
  4. SEROQUEL [Suspect]
     Dosage: 25 MG - 600 MG
     Route: 048
     Dates: start: 20000721
  5. ZYPREXA [Suspect]
     Dates: start: 20010101, end: 20020101
  6. CLONAZEPAM [Concomitant]
     Indication: PANIC ATTACK
     Dosage: 0.5 MG-1 MG
  7. CLONAZEPAM [Concomitant]
     Indication: AGORAPHOBIA
     Dosage: 0.5 MG-1 MG
  8. DICLOFENAC [Concomitant]
     Indication: PAIN
  9. DICLOFENAC [Concomitant]
     Indication: MUSCULOSKELETAL STIFFNESS
  10. TYLENOL (CAPLET) [Concomitant]
     Dosage: 500  AS NEEDED
  11. HYDROCODONE BITARTRATE + ACETAMINOPHEN [Concomitant]
     Indication: PAIN
     Dosage: STRENGTH 7.5/500
  12. MECLIZINE [Concomitant]
     Indication: DIZZINESS
  13. MECLIZINE [Concomitant]
     Indication: VERTIGO
  14. RANITIDINE [Concomitant]
  15. DOXYCYCLINE [Concomitant]
  16. PREDNISONE [Concomitant]
     Dosage: TAPERING DOSE (10 MG TO 5 MG)
  17. WELLBUTRIN [Concomitant]
     Indication: DEPRESSED MOOD
  18. WELLBUTRIN [Concomitant]
     Indication: MOOD ALTERED
  19. EFFEXOR XR [Concomitant]
  20. LOTENSIN [Concomitant]
  21. AMARYL [Concomitant]
  22. ASPIRIN [Concomitant]
  23. AMBIEN [Concomitant]
  24. TRILEPTAL [Concomitant]
  25. CLONIDINE [Concomitant]
  26. CELEXA [Concomitant]
  27. NEURONTIN [Concomitant]
  28. RESTORIL [Concomitant]
  29. LORAZEPAM [Concomitant]

REACTIONS (3)
  - DIABETES MELLITUS [None]
  - DIABETIC NEUROPATHY [None]
  - TYPE 2 DIABETES MELLITUS [None]
